FAERS Safety Report 13177190 (Version 2)
Quarter: 2017Q3

REPORT INFORMATION
  Report Type: Report from Study
  Country: US (occurrence: US)
  Receive Date: 20170201
  Receipt Date: 20170731
  Transmission Date: 20171127
  Serious: No
  Sender: FDA-Public Use
  Company Number: US-EXELIXIS-CABO-16007310

PATIENT
  Sex: Female

DRUGS (13)
  1. MAG OXIDE [Concomitant]
     Active Substance: MAGNESIUM OXIDE
  2. AMLODIPINE [Concomitant]
     Active Substance: AMLODIPINE BESYLATE
  3. CABOMETYX [Suspect]
     Active Substance: CABOZANTINIB S-MALATE
     Indication: RENAL CANCER
     Dosage: 60 MG, QD
     Route: 048
     Dates: start: 20160727
  4. ONDANSETRON [Concomitant]
     Active Substance: ONDANSETRON
  5. LASIX [Concomitant]
     Active Substance: FUROSEMIDE
  6. SUTENT [Concomitant]
     Active Substance: SUNITINIB MALATE
  7. LEVOTHYROXINE. [Concomitant]
     Active Substance: LEVOTHYROXINE
  8. METAMUCIL [Concomitant]
     Active Substance: PLANTAGO SEED
  9. LIPITOR [Concomitant]
     Active Substance: ATORVASTATIN CALCIUM
  10. VITAMIN D3 [Concomitant]
     Active Substance: CHOLECALCIFEROL
  11. LISINOPRIL. [Concomitant]
     Active Substance: LISINOPRIL
  12. OXYCODONE [Concomitant]
     Active Substance: OXYCODONE
  13. WARFARIN [Concomitant]
     Active Substance: WARFARIN

REACTIONS (3)
  - Hypoaesthesia [Unknown]
  - Muscular weakness [Unknown]
  - Blood pressure increased [Unknown]
